FAERS Safety Report 5048537-9 (Version None)
Quarter: 2006Q3

REPORT INFORMATION
  Report Type: 
  Country: None (occurrence: None)
  Receive Date: 20060705
  Receipt Date: 20060622
  Transmission Date: 20061208
  Serious: Yes (Hospitalization)
  Sender: FDA-Public Use
  Company Number: ST-2006-009046

PATIENT
  Age: 68 Year
  Sex: Male
  Weight: 57.4 kg

DRUGS (5)
  1. OLMETEC [Suspect]
     Indication: HYPERTENSION
     Dosage: 20 MG QD PO
     Route: 048
     Dates: start: 20060110, end: 20060120
  2. CHOLEBRINE [Concomitant]
  3. EPADEL [Concomitant]
  4. SINLESTAL [Concomitant]
  5. CALBLOCK [Concomitant]

REACTIONS (8)
  - ALCOHOL USE [None]
  - ANOREXIA [None]
  - DRUG ERUPTION [None]
  - GAMMA-GLUTAMYLTRANSFERASE INCREASED [None]
  - HEPATIC FUNCTION ABNORMAL [None]
  - HEPATIC STEATOSIS [None]
  - LIVER DISORDER [None]
  - MALAISE [None]
